FAERS Safety Report 10618888 (Version 1)
Quarter: 2014Q4

REPORT INFORMATION
  Report Type: Report from Study
  Country: CA (occurrence: CA)
  Receive Date: 20141202
  Receipt Date: 20141202
  Transmission Date: 20150529
  Serious: Yes (Other)
  Sender: FDA-Public Use
  Company Number: CA-JNJFOC-20141117654

PATIENT
  Age: 39 Year
  Sex: Male
  Weight: 104.6 kg

DRUGS (1)
  1. REMICADE [Suspect]
     Active Substance: INFLIXIMAB
     Indication: COLITIS ULCERATIVE
     Route: 042
     Dates: start: 20141008

REACTIONS (5)
  - Chest discomfort [Recovering/Resolving]
  - Erythema [Recovering/Resolving]
  - Oxygen saturation decreased [Recovering/Resolving]
  - Infusion related reaction [Recovering/Resolving]
  - Hyperhidrosis [Recovering/Resolving]

NARRATIVE: CASE EVENT DATE: 20141124
